FAERS Safety Report 14374847 (Version 1)
Quarter: 2018Q1

REPORT INFORMATION
  Report Type: Spontaneous
  Country: US (occurrence: US)
  Receive Date: 20180110
  Receipt Date: 20180110
  Transmission Date: 20180509
  Serious: Yes (Hospitalization)
  Sender: FDA-Public Use
  Company Number: None

PATIENT
  Age: 72 Year
  Sex: Female

DRUGS (1)
  1. LETAIRIS [Suspect]
     Active Substance: AMBRISENTAN
     Indication: PULMONARY ARTERIAL HYPERTENSION
     Route: 048
     Dates: start: 20110801

REACTIONS (4)
  - Cardiac failure congestive [None]
  - Hypervolaemia [None]
  - Treatment noncompliance [None]
  - Respiratory failure [None]

NARRATIVE: CASE EVENT DATE: 20171211
